FAERS Safety Report 12972621 (Version 1)
Quarter: 2016Q4

REPORT INFORMATION
  Report Type: Spontaneous
  Country: US (occurrence: US)
  Receive Date: 20161124
  Receipt Date: 20161124
  Transmission Date: 20170207
  Serious: Yes (Other)
  Sender: FDA-Public Use
  Company Number: PHEH2016US030351

PATIENT
  Age: 61 Year
  Sex: Male

DRUGS (1)
  1. ENTRESTO [Suspect]
     Active Substance: SACUBITRIL\VALSARTAN
     Indication: PRODUCT USED FOR UNKNOWN INDICATION
     Dosage: UNK
     Route: 048
     Dates: start: 20160801, end: 20161107

REACTIONS (3)
  - Paraesthesia oral [Recovered/Resolved]
  - Swelling face [Recovered/Resolved]
  - Angioedema [Recovered/Resolved]

NARRATIVE: CASE EVENT DATE: 201611
